FAERS Safety Report 26201789 (Version 1)
Quarter: 2025Q4

REPORT INFORMATION
  Report Type: Spontaneous
  Country: GB (occurrence: GB)
  Receive Date: 20251226
  Receipt Date: 20251226
  Transmission Date: 20260117
  Serious: Yes (Death, Hospitalization)
  Sender: EXELIXIS
  Company Number: GB-IPSEN Group, Research and Development-2025-22304

PATIENT
  Sex: Female
  Weight: 110 kg

DRUGS (6)
  1. CABOMETYX [Suspect]
     Active Substance: CABOZANTINIB S-MALATE
     Indication: Ewing^s sarcoma
     Dosage: 60 MG, QD
     Route: 048
     Dates: start: 20250811, end: 2025
  2. CABOMETYX [Suspect]
     Active Substance: CABOZANTINIB S-MALATE
     Indication: Off label use
     Dosage: 40 MG, QD
     Route: 048
     Dates: start: 2025, end: 2025
  3. CABOMETYX [Suspect]
     Active Substance: CABOZANTINIB S-MALATE
     Dosage: 20 MG, QD
     Route: 048
     Dates: start: 2025
  4. LOPERAMIDE [Concomitant]
     Active Substance: LOPERAMIDE
     Indication: Diarrhoea
     Dosage: ONGOING
     Route: 048
     Dates: start: 20251006
  5. UREA [Concomitant]
     Active Substance: UREA
     Indication: Rash
     Dosage: UNK
     Route: 061
     Dates: start: 20251006
  6. FEXOFENADINE [Concomitant]
     Active Substance: FEXOFENADINE HYDROCHLORIDE
     Indication: Pruritus
     Dosage: 120 MG, QD
     Dates: start: 20251007

REACTIONS (9)
  - Death [Fatal]
  - Pneumonia [Unknown]
  - Myositis [Recovered/Resolved]
  - Skin depigmentation [Recovering/Resolving]
  - Condition aggravated [Recovering/Resolving]
  - Palmar-plantar erythrodysaesthesia syndrome [Recovering/Resolving]
  - Muscle spasms [Recovering/Resolving]
  - Dry skin [Recovering/Resolving]
  - Off label use [Unknown]

NARRATIVE: CASE EVENT DATE: 20250101
